FAERS Safety Report 4800166-5 (Version None)
Quarter: 2005Q4

REPORT INFORMATION
  Report Type: 
  Country: None (occurrence: None)
  Receive Date: 20051017
  Receipt Date: 20051004
  Transmission Date: 20060501
  Serious: Yes (Death, Life-Threatening)
  Sender: FDA-Public Use
  Company Number: US-JNJFOC-20050603333

PATIENT
  Sex: Male

DRUGS (12)
  1. EXTRA STRENGTH TYLENOL [Suspect]
     Indication: PAIN
     Route: 048
  2. EXTRA STRENGTH TYLENOL [Suspect]
     Indication: ARTHRITIS
     Route: 048
  3. TYLENOL W/ CODEINE [Suspect]
  4. TYLENOL W/ CODEINE [Suspect]
     Indication: DRUG USE FOR UNKNOWN INDICATION
  5. TYLENOL (CAPLET) [Suspect]
     Route: 048
  6. TYLENOL (CAPLET) [Suspect]
     Indication: DRUG USE FOR UNKNOWN INDICATION
     Route: 048
  7. LORTAB [Concomitant]
  8. LORTAB [Concomitant]
  9. DURAGESIC-100 [Concomitant]
  10. AVANDIA [Concomitant]
  11. BLOOD PRESSURE MEDICATIONS [Concomitant]
  12. PRAVACHOL [Concomitant]

REACTIONS (1)
  - PANCREATIC CARCINOMA METASTATIC [None]
